FAERS Safety Report 24409529 (Version 3)
Quarter: 2025Q4

REPORT INFORMATION
  Report Type: Other
  Country: CA (occurrence: CA)
  Receive Date: 20241008
  Receipt Date: 20251202
  Transmission Date: 20260117
  Serious: Yes (Other)
  Sender: GLENMARK
  Company Number: CA-GLENMARK PHARMACEUTICALS-2024GMK094381

PATIENT
  Age: 74 Year
  Sex: Female
  Weight: 78 kg

DRUGS (22)
  1. GABAPENTIN [Suspect]
     Active Substance: GABAPENTIN
     Indication: Product used for unknown indication
     Dosage: UNK 1 EVERY 8 HOURS
     Route: 065
  2. GABAPENTIN [Suspect]
     Active Substance: GABAPENTIN
     Dosage: UNK 1 EVERY 1 DAYS
     Route: 065
  3. GABAPENTIN [Suspect]
     Active Substance: GABAPENTIN
     Dosage: UNK
     Route: 065
  4. GABAPENTIN [Suspect]
     Active Substance: GABAPENTIN
     Dosage: UNK, 3 EVERY 1 DAYS
     Route: 065
  5. KEVZARA [Suspect]
     Active Substance: SARILUMAB
     Indication: Rheumatoid arthritis
     Dosage: 200 MILLIGRAM, 1 EVERY 2 WEEKS
     Route: 058
  6. KEVZARA [Suspect]
     Active Substance: SARILUMAB
     Dosage: 200 MILLIGRAM
     Route: 058
  7. IRON [Suspect]
     Active Substance: IRON
     Indication: Haemoglobin decreased
     Dosage: 0.5 DOSAGE FORM
     Route: 065
  8. IRON [Suspect]
     Active Substance: IRON
     Dosage: UNK
     Route: 065
  9. CALCIUM [Suspect]
     Active Substance: CALCIUM
     Indication: Product used for unknown indication
     Dosage: UNK
     Route: 065
  10. CALCIUM CHLORIDE [Suspect]
     Active Substance: CALCIUM CHLORIDE
     Indication: Product used for unknown indication
     Dosage: UNK
     Route: 065
  11. ACTEMRA [Concomitant]
     Active Substance: TOCILIZUMAB
     Indication: Product used for unknown indication
     Dosage: UNK
     Route: 065
  12. AMLODIPINE [Concomitant]
     Active Substance: AMLODIPINE BESYLATE
     Indication: Hypertension
     Dosage: UNK (1 EVERY 1 DAY)
     Route: 065
  13. ENBREL [Concomitant]
     Active Substance: ETANERCEPT
     Indication: Product used for unknown indication
     Dosage: UNK
     Route: 065
  14. HUMIRA [Concomitant]
     Active Substance: ADALIMUMAB
     Indication: Product used for unknown indication
     Dosage: UNK (FORMULATION: SOLUTION SUBCUTANEOUS)
     Route: 065
  15. HYDROXYCHLOROQUINE [Concomitant]
     Active Substance: HYDROXYCHLOROQUINE
     Indication: Product used for unknown indication
     Dosage: UNK
     Route: 065
  16. LATANOPROST [Concomitant]
     Active Substance: LATANOPROST
     Indication: Product used for unknown indication
     Dosage: UNK (FORMULATION: SOLUTION OPHTHALMIC)
     Route: 065
  17. ORENCIA [Concomitant]
     Active Substance: ABATACEPT
     Indication: Product used for unknown indication
     Dosage: UNK
     Route: 065
  18. RISEDRONATE SODIUM [Concomitant]
     Active Substance: RISEDRONATE SODIUM
     Indication: Product used for unknown indication
     Dosage: UNK 1 EVERY 1 WEEKS
     Route: 065
  19. SULFASALAZINE [Concomitant]
     Active Substance: SULFASALAZINE
     Indication: Product used for unknown indication
     Dosage: UNK
     Route: 065
  20. VITAMIN D3 [Concomitant]
     Active Substance: CHOLECALCIFEROL
     Indication: Product used for unknown indication
     Dosage: UNK 1 EVERY 1 WEEKS
     Route: 065
  21. LATANOPROST [Concomitant]
     Active Substance: LATANOPROST
     Indication: Product used for unknown indication
     Dosage: UNK
     Route: 065
  22. VITAMIN D3 [Concomitant]
     Active Substance: CHOLECALCIFEROL
     Indication: Product used for unknown indication
     Dosage: UNK, 1 EVERY 1 WEEKS
     Route: 065

REACTIONS (35)
  - Bell^s palsy [Not Recovered/Not Resolved]
  - Bone pain [Not Recovered/Not Resolved]
  - Ear pain [Not Recovered/Not Resolved]
  - Muscle spasms [Not Recovered/Not Resolved]
  - Musculoskeletal pain [Not Recovered/Not Resolved]
  - Neck pain [Not Recovered/Not Resolved]
  - Osteoarthritis [Not Recovered/Not Resolved]
  - Pain in extremity [Not Recovered/Not Resolved]
  - Rheumatoid arthritis [Not Recovered/Not Resolved]
  - Vitamin D decreased [Not Recovered/Not Resolved]
  - Skin burning sensation [Not Recovered/Not Resolved]
  - Blood test abnormal [Not Recovered/Not Resolved]
  - Haemoglobin decreased [Not Recovered/Not Resolved]
  - Head discomfort [Not Recovered/Not Resolved]
  - Sleep disorder due to a general medical condition [Not Recovered/Not Resolved]
  - Joint swelling [Not Recovered/Not Resolved]
  - Facial paralysis [Not Recovered/Not Resolved]
  - Haemorrhoids [Not Recovered/Not Resolved]
  - Gait disturbance [Not Recovered/Not Resolved]
  - Abdominal pain upper [Not Recovered/Not Resolved]
  - Pain [Not Recovered/Not Resolved]
  - Headache [Not Recovered/Not Resolved]
  - Pruritus [Not Recovered/Not Resolved]
  - Generalised oedema [Not Recovered/Not Resolved]
  - Hypertension [Not Recovered/Not Resolved]
  - Weight increased [Not Recovered/Not Resolved]
  - Dry mouth [Not Recovered/Not Resolved]
  - Peripheral swelling [Not Recovered/Not Resolved]
  - Arthralgia [Not Recovered/Not Resolved]
  - Constipation [Not Recovered/Not Resolved]
  - Drug ineffective [Unknown]
  - Injection site rash [Not Recovered/Not Resolved]
  - Injury associated with device [Not Recovered/Not Resolved]
  - Injection site erythema [Not Recovered/Not Resolved]
  - Wrong technique in device usage process [Unknown]
